FAERS Safety Report 5471749-7 (Version None)
Quarter: 2007Q3

REPORT INFORMATION
  Report Type: 
  Country: None (occurrence: None)
  Receive Date: 20070928
  Receipt Date: 20070503
  Transmission Date: 20080115
  Serious: No
  Sender: FDA-Public Use
  Company Number: US-BRISTOL-MYERS SQUIBB COMPANY-13768775

PATIENT
  Sex: Male
  Weight: 115 kg

DRUGS (10)
  1. DEFINITY [Suspect]
     Indication: ECHOCARDIOGRAM
     Route: 042
  2. AMBIEN [Concomitant]
  3. METHYLPREDNISOLONE [Concomitant]
  4. PLAVIX [Concomitant]
  5. ASPIRIN [Concomitant]
  6. LASIX [Concomitant]
  7. FENOFIBRATE [Concomitant]
  8. METOPROLOL SUCCINATE [Concomitant]
  9. ALLOPURINOL NYCOMED [Concomitant]
  10. LIPITOR [Concomitant]

REACTIONS (1)
  - BACK PAIN [None]
